FAERS Safety Report 10905477 (Version 2)
Quarter: 2015Q1

REPORT INFORMATION
  Report Type: Spontaneous
  Country: US (occurrence: US)
  Receive Date: 20150311
  Receipt Date: 20150326
  Transmission Date: 20150721
  Serious: Yes (Death, Life-Threatening, Hospitalization)
  Sender: FDA-Public Use
  Company Number: US-JNJFOC-20150203898

PATIENT
  Age: 45 Year
  Sex: Female

DRUGS (5)
  1. FROVATRIPTAN [Suspect]
     Active Substance: FROVATRIPTAN
     Indication: PRODUCT USED FOR UNKNOWN INDICATION
     Route: 048
  2. ELETRIPTAN [Suspect]
     Active Substance: ELETRIPTAN
     Indication: PRODUCT USED FOR UNKNOWN INDICATION
     Route: 048
  3. ALMOTRIPTAN [Suspect]
     Active Substance: ALMOTRIPTAN
     Indication: PRODUCT USED FOR UNKNOWN INDICATION
     Route: 048
  4. NSAIDS [Concomitant]
     Active Substance: UNSPECIFIED INGREDIENT
     Route: 065
  5. CODEINE [Suspect]
     Active Substance: CODEINE
     Indication: PRODUCT USED FOR UNKNOWN INDICATION
     Route: 065

REACTIONS (5)
  - Pulseless electrical activity [Fatal]
  - Medication error [Fatal]
  - Disseminated intravascular coagulation [Fatal]
  - Haemodynamic instability [Fatal]
  - Colitis ischaemic [Fatal]
